FAERS Safety Report 5746830-5 (Version None)
Quarter: 2008Q2

REPORT INFORMATION
  Report Type: 
  Country: None (occurrence: None)
  Receive Date: 20080522
  Receipt Date: 20080513
  Transmission Date: 20081010
  Serious: Yes (Hospitalization)
  Sender: FDA-Public Use
  Company Number: IN-PFIZER INC-2007055347

PATIENT
  Sex: Male
  Weight: 66 kg

DRUGS (4)
  1. SU-011,248 [Suspect]
     Indication: RENAL CELL CARCINOMA
     Route: 048
     Dates: start: 20070621, end: 20070704
  2. DAONIL [Concomitant]
  3. ELTROXIN [Concomitant]
     Route: 048
  4. LOSARTAN POTASSIUM [Concomitant]

REACTIONS (3)
  - ENCEPHALOPATHY [None]
  - HYPERCALCAEMIA [None]
  - HYPONATRAEMIA [None]
